APPROVED DRUG PRODUCT: CEFIXIME
Active Ingredient: CEFIXIME
Strength: 100MG/5ML
Dosage Form/Route: FOR SUSPENSION;ORAL
Application: A206144 | Product #001
Applicant: CHARTWELL RX SCIENCES LLC
Approved: Nov 17, 2017 | RLD: No | RS: No | Type: DISCN